FAERS Safety Report 15572238 (Version 1)
Quarter: 2018Q4

REPORT INFORMATION
  Report Type: Spontaneous
  Country: SK (occurrence: SK)
  Receive Date: 20181031
  Receipt Date: 20181031
  Transmission Date: 20190205
  Serious: Yes (Hospitalization, Other)
  Sender: FDA-Public Use
  Company Number: SK-MYLANLABS-2018M1081199

PATIENT
  Age: 69 Year
  Sex: Male

DRUGS (3)
  1. ATORVASTATIN [Suspect]
     Active Substance: ATORVASTATIN
     Indication: HYPERCHOLESTEROLAEMIA
     Dosage: 80 MG, QD
  2. EZETIMIBE. [Suspect]
     Active Substance: EZETIMIBE
     Indication: TYPE IIA HYPERLIPIDAEMIA
     Dosage: 10 MG, UNK (10 MG, ADDED TO TREATMENT AFTER 8 MONTHS OF SINGLE ATORVASTATIN TREATMENT)
  3. ALIROCUMAB [Suspect]
     Active Substance: ALIROCUMAB
     Indication: TYPE IIA HYPERLIPIDAEMIA
     Dosage: 150 MG, CYCLE (CYCLIC EVERY 2 WEEKS)

REACTIONS (3)
  - Peripheral artery occlusion [Unknown]
  - Acute coronary syndrome [Unknown]
  - Drug ineffective [Unknown]
